FAERS Safety Report 4993181-2 (Version None)
Quarter: 2006Q1

REPORT INFORMATION
  Report Type: 
  Country: None (occurrence: None)
  Receive Date: 20060313
  Receipt Date: 20051208
  Transmission Date: 20060701
  Serious: No
  Sender: FDA-Public Use
  Company Number: 2005-BP-17211BP

PATIENT
  Age: 55 Year
  Sex: Male

DRUGS (2)
  1. SPIRIVA [Suspect]
     Dosage: (18 MCG)
  2. SPIRIVA [Suspect]

REACTIONS (1)
  - AGEUSIA [None]
